FAERS Safety Report 26173279 (Version 3)
Quarter: 2025Q4

REPORT INFORMATION
  Report Type: Spontaneous
  Country: EU (occurrence: None)
  Receive Date: 20251218
  Receipt Date: 20251223
  Transmission Date: 20260118
  Serious: No
  Sender: UCB
  Company Number: None

PATIENT
  Age: 62 Year
  Weight: 71 kg

DRUGS (3)
  1. BIMEKIZUMAB [Suspect]
     Active Substance: BIMEKIZUMAB
     Indication: Psoriatic arthropathy
     Dosage: 160 MILLIGRAM, EV 4 WEEKS
  2. ATORVASTATIN [Concomitant]
     Active Substance: ATORVASTATIN
     Indication: Hypercholesterolaemia
     Route: 061
  3. EZETIMIBE [Concomitant]
     Active Substance: EZETIMIBE
     Indication: Hypercholesterolaemia
     Dosage: 20 MILLIGRAM
     Route: 061

REACTIONS (1)
  - Herpes zoster [Recovered/Resolved]
